FAERS Safety Report 11671522 (Version 1)
Quarter: 2015Q4

REPORT INFORMATION
  Report Type: Spontaneous
  Country: US (occurrence: US)
  Receive Date: 20151027
  Receipt Date: 20151027
  Transmission Date: 20160304
  Serious: No
  Sender: FDA-Public Use
  Company Number: US-ELI_LILLY_AND_COMPANY-US201005005591

PATIENT
  Age: 68 Year
  Sex: Female

DRUGS (2)
  1. FORTEO [Suspect]
     Active Substance: TERIPARATIDE
     Dosage: UNK, UNKNOWN
  2. FORTEO [Suspect]
     Active Substance: TERIPARATIDE
     Dosage: UNK, UNKNOWN

REACTIONS (10)
  - Fatigue [Unknown]
  - Gait disturbance [Unknown]
  - Stress [Unknown]
  - Diarrhoea [Unknown]
  - Injection site pain [Unknown]
  - Asthenia [Unknown]
  - Pain in extremity [Unknown]
  - Muscle strain [Unknown]
  - Anxiety [Unknown]
  - Fall [Unknown]

NARRATIVE: CASE EVENT DATE: 20100426
